FAERS Safety Report 5217184-8 (Version None)
Quarter: 2007Q1

REPORT INFORMATION
  Report Type: 
  Country: None (occurrence: None)
  Receive Date: 20070122
  Receipt Date: 20070122
  Transmission Date: 20070707
  Serious: Yes (Hospitalization)
  Sender: FDA-Public Use
  Company Number: None

PATIENT
  Sex: Female
  Weight: 96.2 kg

DRUGS (1)
  1. ELOXATIN [Suspect]
     Dosage: 725 MG
     Dates: end: 20060808

REACTIONS (10)
  - ANAL SPHINCTER ATONY [None]
  - ARTHRALGIA [None]
  - CONDITION AGGRAVATED [None]
  - FAECAL INCONTINENCE [None]
  - HAEMANGIOMA [None]
  - HYPOAESTHESIA [None]
  - HYPOAESTHESIA ORAL [None]
  - MENINGEAL DISORDER [None]
  - PERIPHERAL SENSORY NEUROPATHY [None]
  - WALKING AID USER [None]
